FAERS Safety Report 4558910-0 (Version None)
Quarter: 2005Q1

REPORT INFORMATION
  Report Type: 
  Country: None (occurrence: None)
  Receive Date: 20050119
  Receipt Date: 20050110
  Transmission Date: 20050727
  Serious: Yes (Death, Other)
  Sender: FDA-Public Use
  Company Number: 2005US000027

PATIENT
  Age: 59 Year
  Sex: Male

DRUGS (3)
  1. PROGRAF [Suspect]
     Indication: PROPHYLAXIS AGAINST TRANSPLANT REJECTION
  2. AZATHIOPRINE [Concomitant]
  3. PREDNISONE [Concomitant]

REACTIONS (10)
  - BK VIRUS INFECTION [None]
  - CORONARY ARTERY DISEASE [None]
  - DEPRESSED LEVEL OF CONSCIOUSNESS [None]
  - GASTRIC ULCER PERFORATION [None]
  - HERPES OESOPHAGITIS [None]
  - HYDRONEPHROSIS [None]
  - HYPOXIA [None]
  - NEPHROPATHY [None]
  - PERITONITIS [None]
  - TRANSITIONAL CELL CARCINOMA [None]
